FAERS Safety Report 9913572 (Version 1)
Quarter: 2014Q1

REPORT INFORMATION
  Report Type: Spontaneous
  Country: US (occurrence: None)
  Receive Date: 20140218
  Receipt Date: 20140218
  Transmission Date: 20141002
  Serious: Yes (Hospitalization)
  Sender: FDA-Public Use
  Company Number: None

PATIENT
  Age: 68 Year
  Sex: Male

DRUGS (3)
  1. CIPROFLOXACIN/DEXTROSE [Suspect]
     Indication: INFECTION
     Route: 042
     Dates: start: 20131224, end: 20131224
  2. TERAZOSIN [Suspect]
     Indication: HYPERTENSION
     Route: 048
     Dates: start: 20131216, end: 20140117
  3. TERAZOSIN [Suspect]
     Indication: BENIGN PROSTATIC HYPERPLASIA
     Route: 048
     Dates: start: 20131216, end: 20140117

REACTIONS (8)
  - Dizziness [None]
  - Hypotension [None]
  - Renal failure acute [None]
  - Hyperkalaemia [None]
  - Prerenal failure [None]
  - Renal tubular necrosis [None]
  - Tubulointerstitial nephritis [None]
  - Nephrolithiasis [None]
